FAERS Safety Report 21374120 (Version 2)
Quarter: 2022Q4

REPORT INFORMATION
  Report Type: Report from Study
  Country: US (occurrence: US)
  Receive Date: 20220926
  Receipt Date: 20221029
  Transmission Date: 20230113
  Serious: Yes (Other)
  Sender: FDA-Public Use
  Company Number: US-ABBVIE-4129633

PATIENT
  Sex: Female

DRUGS (2)
  1. IMBRUVICA [Suspect]
     Active Substance: IBRUTINIB
     Indication: Chronic lymphocytic leukaemia
     Route: 048
     Dates: start: 201810
  2. IMBRUVICA [Suspect]
     Active Substance: IBRUTINIB
     Indication: Chronic lymphocytic leukaemia
     Route: 048

REACTIONS (13)
  - Thyroid cancer [Unknown]
  - Feeling abnormal [Unknown]
  - Illness [Unknown]
  - Uterine cancer [Unknown]
  - Gastric cancer [Not Recovered/Not Resolved]
  - Colon cancer stage IV [Unknown]
  - Malignant melanoma [Unknown]
  - Fatigue [Unknown]
  - Nail operation [Unknown]
  - Lymphadenitis [Not Recovered/Not Resolved]
  - Nail discolouration [Unknown]
  - Diarrhoea [Unknown]
  - Haemorrhoids [Unknown]

NARRATIVE: CASE EVENT DATE: 20210101
